FAERS Safety Report 5841963-7 (Version None)
Quarter: 2008Q3

REPORT INFORMATION
  Report Type: 
  Country: None (occurrence: None)
  Receive Date: 20080811
  Receipt Date: 20080811
  Transmission Date: 20090109
  Serious: Yes (Other)
  Sender: FDA-Public Use
  Company Number: None

PATIENT
  Age: 55 Year
  Sex: Female
  Weight: 70.7611 kg

DRUGS (2)
  1. BUPROPION SR 200MG WATCON [Suspect]
     Indication: DEPRESSION
     Dates: start: 20080728, end: 20080810
  2. BUPROPION SR 200MG WATSON [Suspect]

REACTIONS (4)
  - DEPRESSION [None]
  - PHARMACEUTICAL PRODUCT COMPLAINT [None]
  - THERAPEUTIC RESPONSE UNEXPECTED WITH DRUG SUBSTITUTION [None]
  - WEIGHT INCREASED [None]
